FAERS Safety Report 19426891 (Version 1)
Quarter: 2021Q2

REPORT INFORMATION
  Report Type: Spontaneous
  Country: US (occurrence: US)
  Receive Date: 20210616
  Receipt Date: 20210616
  Transmission Date: 20210717
  Serious: No
  Sender: FDA-Public Use
  Company Number: US-ENDO PHARMACEUTICALS INC-2020-005252

PATIENT
  Age: 10 Year
  Sex: Female
  Weight: 67.7 kg

DRUGS (4)
  1. SUPPRELIN LA [Suspect]
     Active Substance: HISTRELIN ACETATE
     Indication: PRECOCIOUS PUBERTY
     Dosage: 50 MG, UNKNOWN
     Route: 065
     Dates: start: 20190726
  2. SUPPRELIN LA [Suspect]
     Active Substance: HISTRELIN ACETATE
     Dosage: 50 MG, UNKNOWN
     Route: 065
     Dates: start: 20170721
  3. SUPPRELIN LA [Suspect]
     Active Substance: HISTRELIN ACETATE
     Dosage: 50 MG, UNKNOWN
     Route: 065
     Dates: start: 20170721
  4. SUPPRELIN LA [Suspect]
     Active Substance: HISTRELIN ACETATE
     Indication: PRECOCIOUS PUBERTY
     Dosage: 50 MG, UNKNOWN
     Route: 065
     Dates: start: 20190726

REACTIONS (2)
  - Implant site swelling [Unknown]
  - Device malfunction [Unknown]

NARRATIVE: CASE EVENT DATE: 202003
